FAERS Safety Report 6734757-1 (Version None)
Quarter: 2010Q2

REPORT INFORMATION
  Report Type: 
  Country: None (occurrence: None)
  Receive Date: 20100519
  Receipt Date: 20100519
  Transmission Date: 20101027
  Serious: Yes (Other)
  Sender: FDA-Public Use
  Company Number: None

PATIENT
  Sex: Male
  Weight: 69.8539 kg

DRUGS (1)
  1. ACTONEL [Suspect]
     Indication: DRUG THERAPY

REACTIONS (3)
  - ABDOMINAL PAIN UPPER [None]
  - HYPOPHAGIA [None]
  - WEIGHT DECREASED [None]
